FAERS Safety Report 7349804-6 (Version None)
Quarter: 2011Q1

REPORT INFORMATION
  Report Type: 
  Country: None (occurrence: None)
  Receive Date: 20110314
  Receipt Date: 20110304
  Transmission Date: 20110831
  Serious: Yes (Hospitalization)
  Sender: FDA-Public Use
  Company Number: US-RB-022549-11

PATIENT
  Age: 76 Year
  Sex: Male

DRUGS (1)
  1. MUCINEX [Suspect]
     Dosage: TAKEN FOR A YEAR
     Route: 048

REACTIONS (3)
  - INCORRECT DRUG ADMINISTRATION DURATION [None]
  - DYSPNOEA [None]
  - COUGH [None]
